FAERS Safety Report 10007469 (Version 2)
Quarter: 2014Q2

REPORT INFORMATION
  Report Type: Spontaneous
  Country: GB (occurrence: None)
  Receive Date: 20140311
  Receipt Date: 20140514
  Transmission Date: 20141212
  Serious: Yes (Death, Life-Threatening, Hospitalization)
  Sender: FDA-Public Use
  Company Number: FK201400730

PATIENT
  Age: 63 Year
  Sex: Male
  Weight: 66 kg

DRUGS (1)
  1. IRINOTECAN [Suspect]
     Indication: PALLIATIVE CARE
     Route: 042
     Dates: start: 20131031, end: 20131220

REACTIONS (3)
  - Pneumocystis jirovecii infection [None]
  - Lymphopenia [None]
  - Dyspnoea [None]
